FAERS Safety Report 5773777-0 (Version None)
Quarter: 2008Q2

REPORT INFORMATION
  Report Type: 
  Country: None (occurrence: None)
  Receive Date: 20080616
  Receipt Date: 20080605
  Transmission Date: 20081010
  Serious: Yes (Other)
  Sender: FDA-Public Use
  Company Number: US-JNJFOC-20080602062

PATIENT
  Sex: Female
  Weight: 58.06 kg

DRUGS (12)
  1. REMICADE [Suspect]
     Indication: PSORIATIC ARTHROPATHY
     Dosage: TAKING FOR 9 YEARS
     Route: 042
  2. METHOTREXATE [Concomitant]
     Indication: PSORIATIC ARTHROPATHY
     Dosage: 20 YEARS
  3. FOLIC ACID [Concomitant]
     Indication: PROPHYLAXIS
     Dosage: 10 YEARS
  4. FLAGYL [Concomitant]
     Dosage: 30 DAYS
  5. MELOXICAM [Concomitant]
     Indication: PSORIATIC ARTHROPATHY
     Dosage: 8 YEARS
  6. BALTREX [Concomitant]
     Indication: ORAL HERPES
     Dosage: 3 YEARS
  7. POTASSIUM CHLORIDE [Concomitant]
     Indication: FLUID RETENTION
     Dosage: 4 YEARS
  8. CALCIUM [Concomitant]
     Indication: BONE DISORDER
     Dosage: MANY YEARS
  9. CENTRUM MULTIVITAMIN [Concomitant]
     Indication: VITAMIN SUPPLEMENTATION
     Dosage: 20 YEARS
  10. VITAMIN E [Concomitant]
     Indication: VITAMIN SUPPLEMENTATION
     Dosage: 20 YEARS
  11. FLAXSEED OIL [Concomitant]
     Indication: COLITIS
     Dosage: 4 YEARS
  12. FISH OIL [Concomitant]
     Indication: COLITIS
     Dosage: 4 YEARS

REACTIONS (2)
  - COLITIS [None]
  - LOCALISED INFECTION [None]
